FAERS Safety Report 9384933 (Version 1)
Quarter: 2013Q3

REPORT INFORMATION
  Report Type: Spontaneous
  Country: US (occurrence: US)
  Receive Date: 20130705
  Receipt Date: 20130705
  Transmission Date: 20140515
  Serious: Yes (Hospitalization)
  Sender: FDA-Public Use
  Company Number: US-GLAXOSMITHKLINE-A0978447A

PATIENT
  Age: 51 Year
  Sex: Female
  Weight: 74.91 kg

DRUGS (23)
  1. BENLYSTA [Suspect]
     Indication: SYSTEMIC LUPUS ERYTHEMATOSUS
     Route: 042
     Dates: start: 20120501, end: 201402
  2. PREDNISONE [Concomitant]
     Dosage: 20MG PER DAY
  3. PLAQUENIL [Concomitant]
  4. METFORMIN [Concomitant]
  5. TRAMADOL [Concomitant]
     Indication: PAIN
  6. FIORICET [Concomitant]
     Indication: HEADACHE
  7. LANTUS [Concomitant]
  8. HUMALOG [Concomitant]
  9. TOPAMAX [Concomitant]
  10. LORAZEPAM [Concomitant]
  11. SYNTHROID [Concomitant]
  12. TRAZODONE [Concomitant]
  13. OXYCONTIN [Concomitant]
  14. OXYCODONE [Concomitant]
  15. TYLENOL WITH CODEINE [Concomitant]
  16. ALPRAZOLAM [Concomitant]
  17. JANUMET [Concomitant]
  18. VENTOLIN [Concomitant]
  19. SINGULAIR [Concomitant]
  20. BACTRIM [Concomitant]
  21. THEOPHYLLINE [Concomitant]
  22. COLCRYS [Concomitant]
  23. ALENDRONATE [Concomitant]

REACTIONS (14)
  - Middle insomnia [Not Recovered/Not Resolved]
  - Migraine [Recovering/Resolving]
  - Nausea [Recovering/Resolving]
  - Abdominal pain upper [Recovering/Resolving]
  - Gastritis [Recovering/Resolving]
  - Weight increased [Recovering/Resolving]
  - Nasal congestion [Recovering/Resolving]
  - Sinusitis [Not Recovered/Not Resolved]
  - Muscular weakness [Recovering/Resolving]
  - Shrinking lung syndrome [Not Recovered/Not Resolved]
  - Pneumonia [Not Recovered/Not Resolved]
  - Pleurisy [Not Recovered/Not Resolved]
  - Pain [Not Recovered/Not Resolved]
  - Lung infection [Unknown]
